FAERS Safety Report 6390797-6 (Version None)
Quarter: 2009Q4

REPORT INFORMATION
  Report Type: 
  Country: None (occurrence: None)
  Receive Date: 20091001
  Receipt Date: 20090730
  Transmission Date: 20100525
  Serious: No
  Sender: FDA-Public Use
  Company Number: 1000007890

PATIENT
  Age: 45 Year
  Sex: Male
  Weight: 136.0791 kg

DRUGS (5)
  1. BYSTOLIC [Suspect]
     Indication: HYPERTENSION
     Dosage: 5 MG (5 MG, 1 IN 1 D), ORAL : 10 MG (10 MG, 1 IN 1 D), ORAL
     Route: 048
     Dates: start: 20090501, end: 20090501
  2. LISINOPRIL [Concomitant]
  3. VERAPAMIL [Concomitant]
  4. OMEPRAZOLE [Concomitant]
  5. CLARITIN [Concomitant]

REACTIONS (4)
  - ANGER [None]
  - BLOOD PRESSURE INCREASED [None]
  - IRRITABILITY [None]
  - WEIGHT INCREASED [None]
